FAERS Safety Report 23217065 (Version 1)
Quarter: 2023Q4

REPORT INFORMATION
  Report Type: Spontaneous
  Country: PL (occurrence: PL)
  Receive Date: 20231122
  Receipt Date: 20231122
  Transmission Date: 20240109
  Serious: Yes (Life-Threatening, Hospitalization, Other)
  Sender: FDA-Public Use
  Company Number: None

PATIENT
  Age: 72 Year
  Sex: Male
  Weight: 90 kg

DRUGS (5)
  1. PANITUMUMAB [Suspect]
     Active Substance: PANITUMUMAB
     Indication: Colon cancer
     Dosage: 558 MILLIGRAM
     Route: 040
     Dates: start: 20200908
  2. OXALIPLATIN [Suspect]
     Active Substance: OXALIPLATIN
     Indication: Colon cancer
     Dosage: 170 MILLIGRAM
     Route: 040
     Dates: start: 20200908, end: 20200908
  3. LEVOLEUCOVORIN CALCIUM [Suspect]
     Active Substance: LEVOLEUCOVORIN CALCIUM
     Indication: Colon cancer
     Dosage: 420 MILLIGRAM
     Route: 040
     Dates: start: 20200908, end: 20200908
  4. FLUOROURACIL [Suspect]
     Active Substance: FLUOROURACIL
     Indication: Colon cancer
     Dosage: INFUSION;
     Route: 040
     Dates: start: 20200908, end: 20200909
  5. FLUOROURACIL [Suspect]
     Active Substance: FLUOROURACIL
     Dosage: BOLUS;
     Route: 040
     Dates: start: 20200908, end: 20200909

REACTIONS (1)
  - Neutropenia [Recovering/Resolving]

NARRATIVE: CASE EVENT DATE: 20200916
